FAERS Safety Report 24690865 (Version 5)
Quarter: 2025Q1

REPORT INFORMATION
  Report Type: Spontaneous
  Country: JP (occurrence: JP)
  Receive Date: 20241203
  Receipt Date: 20250205
  Transmission Date: 20250409
  Serious: Yes (Other)
  Sender: BRISTOL-MYERS SQUIBB COMPANY
  Company Number: JP-TAIHO-2024-010406

PATIENT
  Age: 66 Year
  Sex: Male

DRUGS (22)
  1. ABRAXANE [Suspect]
     Active Substance: PACLITAXEL
     Indication: Pancreatic carcinoma
     Route: 041
     Dates: start: 20211228, end: 20220502
  2. ABRAXANE [Suspect]
     Active Substance: PACLITAXEL
     Route: 041
     Dates: start: 202402, end: 20241021
  3. ABRAXANE [Suspect]
     Active Substance: PACLITAXEL
     Dosage: DAILY DOSE: 170MG
     Route: 041
     Dates: start: 20240226, end: 20240226
  4. ABRAXANE [Suspect]
     Active Substance: PACLITAXEL
     Dosage: DAILY DOSE: 170MG
     Route: 041
     Dates: start: 20240311, end: 20240311
  5. ABRAXANE [Suspect]
     Active Substance: PACLITAXEL
     Dosage: DAILY DOSE: 170MG
     Route: 041
     Dates: start: 20240325, end: 20240325
  6. ABRAXANE [Suspect]
     Active Substance: PACLITAXEL
     Dosage: DAILY DOSE: 170MG
     Route: 041
     Dates: start: 20240408, end: 20240408
  7. ABRAXANE [Suspect]
     Active Substance: PACLITAXEL
     Dosage: DAILY DOSE: 170MG
     Route: 041
     Dates: start: 20240422, end: 20240422
  8. ABRAXANE [Suspect]
     Active Substance: PACLITAXEL
     Dosage: DAILY DOSE: 170MG
     Route: 041
     Dates: start: 20240513, end: 20240513
  9. ABRAXANE [Suspect]
     Active Substance: PACLITAXEL
     Dosage: DAILY DOSE: 170MG
     Route: 041
     Dates: start: 20240513, end: 20240513
  10. ABRAXANE [Suspect]
     Active Substance: PACLITAXEL
     Dosage: DAILY DOSE: 170MG
     Route: 041
     Dates: start: 20240527, end: 20240527
  11. ABRAXANE [Suspect]
     Active Substance: PACLITAXEL
     Dosage: DAILY DOSE: 170MG
     Route: 041
     Dates: start: 20240610, end: 20240610
  12. ABRAXANE [Suspect]
     Active Substance: PACLITAXEL
     Dosage: DAILY DOSE: 160MG
     Route: 041
     Dates: start: 20240610, end: 20240610
  13. ABRAXANE [Suspect]
     Active Substance: PACLITAXEL
     Dosage: DAILY DOSE: 160MG
     Route: 041
     Dates: start: 20240708, end: 20240708
  14. ABRAXANE [Suspect]
     Active Substance: PACLITAXEL
     Dosage: DAILY DOSE: 160MG
     Route: 041
     Dates: start: 20240722, end: 20240722
  15. ABRAXANE [Suspect]
     Active Substance: PACLITAXEL
     Dosage: DAILY DOSE: 160MG
     Route: 041
     Dates: start: 20240805, end: 20240805
  16. ABRAXANE [Suspect]
     Active Substance: PACLITAXEL
     Dosage: DAILY DOSE: 160MG
     Route: 041
     Dates: start: 20240819, end: 20240819
  17. ABRAXANE [Suspect]
     Active Substance: PACLITAXEL
     Dosage: DAILY DOSE: 160MG
     Route: 041
     Dates: start: 20240902, end: 20240902
  18. ABRAXANE [Suspect]
     Active Substance: PACLITAXEL
     Dosage: DAILY DOSE: 160MG
     Route: 041
     Dates: start: 20240930, end: 20240930
  19. ABRAXANE [Suspect]
     Active Substance: PACLITAXEL
     Dosage: DAILY DOSE: 160MG
     Route: 041
     Dates: start: 20241021, end: 20241021
  20. GEMZAR [Concomitant]
     Active Substance: GEMCITABINE HYDROCHLORIDE
     Indication: Pancreatic carcinoma
     Dates: start: 20211228, end: 20220505
  21. GEMZAR [Concomitant]
     Active Substance: GEMCITABINE HYDROCHLORIDE
     Route: 041
     Dates: start: 20240226, end: 20241021
  22. GEMZAR [Concomitant]
     Active Substance: GEMCITABINE HYDROCHLORIDE
     Dates: start: 20211228, end: 202402

REACTIONS (2)
  - Hepatitis B antigen positive [Not Recovered/Not Resolved]
  - Suspected transmission of an infectious agent via product [Unknown]

NARRATIVE: CASE EVENT DATE: 20240226
